FAERS Safety Report 11640585 (Version 1)
Quarter: 2015Q4

REPORT INFORMATION
  Report Type: Spontaneous
  Country: US (occurrence: None)
  Receive Date: 20151016
  Receipt Date: 20151016
  Transmission Date: 20160304
  Serious: Yes (Hospitalization)
  Sender: FDA-Public Use
  Company Number: None

PATIENT
  Age: 80 Year
  Sex: Male
  Weight: 70.31 kg

DRUGS (7)
  1. IMODIUM AD [Suspect]
     Active Substance: LOPERAMIDE HYDROCHLORIDE
     Indication: DIARRHOEA
     Dates: start: 20150925, end: 20150925
  2. AMOXICILLIN. [Concomitant]
     Active Substance: AMOXICILLIN
  3. GINKGO BILOBA [Concomitant]
     Active Substance: GINKGO
  4. SPECTRAVITE MULTI-VITAMIN [Concomitant]
  5. TYLENOL [Concomitant]
     Active Substance: ACETAMINOPHEN
  6. MUCINEX [Concomitant]
     Active Substance: GUAIFENESIN
  7. XLEAR [Concomitant]

REACTIONS (6)
  - Cyanosis [None]
  - Rash erythematous [None]
  - Poor venous access [None]
  - Vomiting [None]
  - Anaphylactic shock [None]
  - Dyspnoea [None]

NARRATIVE: CASE EVENT DATE: 20150925
